FAERS Safety Report 8074757-5 (Version None)
Quarter: 2012Q1

REPORT INFORMATION
  Report Type: 
  Country: None (occurrence: None)
  Receive Date: 20120126
  Receipt Date: 20120119
  Transmission Date: 20120608
  Serious: Yes (Life-Threatening)
  Sender: FDA-Public Use
  Company Number: JP-ROCHE-654703

PATIENT
  Sex: Male

DRUGS (15)
  1. PREDNISOLONE [Concomitant]
     Indication: RHEUMATOID ARTHRITIS
     Route: 048
  2. CIMETIDINE [Concomitant]
     Indication: PROPHYLAXIS
     Dosage: FORM: ORAL FORMULATION
     Route: 048
  3. ACTEMRA [Suspect]
     Route: 041
     Dates: start: 20090806, end: 20090806
  4. FOLIC ACID [Concomitant]
     Indication: PROPHYLAXIS
     Route: 048
  5. ACTEMRA [Suspect]
     Indication: RHEUMATOID ARTHRITIS
     Route: 041
     Dates: start: 20090108, end: 20090108
  6. WARKMIN [Concomitant]
     Indication: OSTEOPOROSIS
     Route: 048
  7. ACTEMRA [Suspect]
     Route: 041
     Dates: start: 20090204, end: 20090204
  8. ACTEMRA [Suspect]
     Route: 041
     Dates: start: 20090402, end: 20090402
  9. ACTEMRA [Suspect]
     Route: 041
     Dates: start: 20090703, end: 20090703
  10. ACTEMRA [Suspect]
     Route: 041
     Dates: start: 20090305, end: 20090305
  11. RISEDRONATE SODIUM [Concomitant]
     Indication: OSTEOPOROSIS
     Dosage: DRUG: SODIUM RISENDRONATE HYDRATE
     Route: 048
  12. NABUMETONE [Concomitant]
     Indication: RHEUMATOID ARTHRITIS
     Route: 048
  13. ACTEMRA [Suspect]
     Route: 041
     Dates: start: 20090604, end: 20090604
  14. ACTEMRA [Suspect]
     Route: 041
     Dates: start: 20090507, end: 20090507
  15. METHOTREXATE [Suspect]
     Indication: RHEUMATOID ARTHRITIS
     Route: 048

REACTIONS (4)
  - CHOLELITHIASIS [None]
  - GASTRIC CANCER [None]
  - BLOOD IMMUNOGLOBULIN G DECREASED [None]
  - WHITE BLOOD CELL COUNT INCREASED [None]
